FAERS Safety Report 19249310 (Version 5)
Quarter: 2021Q2

REPORT INFORMATION
  Report Type: Spontaneous
  Country: US (occurrence: US)
  Receive Date: 20210512
  Receipt Date: 20210629
  Transmission Date: 20210717
  Serious: No
  Sender: FDA-Public Use
  Company Number: US-ORGANON-O2105USA000609

PATIENT
  Age: 37 Year
  Sex: Female
  Weight: 104.76 kg

DRUGS (2)
  1. NEXPLANON [Suspect]
     Active Substance: ETONOGESTREL
     Indication: CONTRACEPTION
  2. NEXPLANON [Suspect]
     Active Substance: ETONOGESTREL
     Indication: ABNORMAL UTERINE BLEEDING
     Dosage: 1 IMPLANT OF 68 MG EVERY 3 YEARS, LEFT ARM
     Route: 059
     Dates: start: 20210412, end: 20210510

REACTIONS (4)
  - Implant site pain [Not Recovered/Not Resolved]
  - Product use in unapproved indication [Unknown]
  - Feeling abnormal [Unknown]
  - Device kink [Recovered/Resolved]

NARRATIVE: CASE EVENT DATE: 2021
